FAERS Safety Report 7313369-5 (Version None)
Quarter: 2011Q1

REPORT INFORMATION
  Report Type: 
  Country: None (occurrence: None)
  Receive Date: 20110217
  Receipt Date: 20110217
  Transmission Date: 20110831
  Serious: Yes (Life-Threatening)
  Sender: FDA-Public Use
  Company Number: None

PATIENT
  Age: 49 Year
  Sex: Male
  Weight: 84.369 kg

DRUGS (1)
  1. LEVAQUIN [Suspect]
     Indication: SINUSITIS
     Dosage: ONE DAY PO
     Route: 048
     Dates: start: 20080804, end: 20080809

REACTIONS (10)
  - TENDON RUPTURE [None]
  - SKIN DISORDER [None]
  - ORAL CANDIDIASIS [None]
  - CONNECTIVE TISSUE DISORDER [None]
  - TENDONITIS [None]
  - GENERAL PHYSICAL HEALTH DETERIORATION [None]
  - TOXICITY TO VARIOUS AGENTS [None]
  - UNEVALUABLE EVENT [None]
  - GASTROINTESTINAL DISORDER [None]
  - CARDIAC DISORDER [None]
